FAERS Safety Report 23311767 (Version 1)
Quarter: 2023Q4

REPORT INFORMATION
  Report Type: Spontaneous
  Country: US (occurrence: None)
  Receive Date: 20231218
  Receipt Date: 20231218
  Transmission Date: 20240110
  Serious: No
  Sender: FDA-Public Use
  Company Number: None

PATIENT
  Age: 52 Year
  Sex: Female

DRUGS (16)
  1. AMBRISENTAN [Suspect]
     Active Substance: AMBRISENTAN
     Indication: Pulmonary arterial hypertension
     Dosage: FREQUENCY : DAILY;?
     Route: 048
     Dates: start: 20230605
  2. BREO INHALER [Concomitant]
  3. NORTRIPTYLINE [Concomitant]
  4. EFFEXOR [Concomitant]
  5. BALSALAZIDE [Concomitant]
  6. PROZAC [Concomitant]
  7. TOPAMAX [Concomitant]
  8. PROTONIX [Concomitant]
  9. LYRICA [Concomitant]
  10. LASIX [Concomitant]
  11. XNAX [Concomitant]
  12. POTASSIUM [Concomitant]
  13. LORAZEPAM [Concomitant]
  14. ZANAFLEX [Concomitant]
  15. ZOFRAN [Concomitant]
  16. AJOVY [Concomitant]

REACTIONS (1)
  - Influenza like illness [None]

NARRATIVE: CASE EVENT DATE: 20231217
